FAERS Safety Report 24601492 (Version 1)
Quarter: 2024Q4

REPORT INFORMATION
  Report Type: Spontaneous
  Country: ES (occurrence: ES)
  Receive Date: 20241111
  Receipt Date: 20241111
  Transmission Date: 20250115
  Serious: Yes (Other)
  Sender: BOEHRINGER INGELHEIM
  Company Number: ES-BoehringerIngelheim-2024-BI-060990

PATIENT
  Sex: Female

DRUGS (3)
  1. IDARUCIZUMAB [Suspect]
     Active Substance: IDARUCIZUMAB
     Indication: Procoagulant therapy
  2. IDARUCIZUMAB [Suspect]
     Active Substance: IDARUCIZUMAB
  3. IDARUCIZUMAB [Suspect]
     Active Substance: IDARUCIZUMAB

REACTIONS (1)
  - Drug ineffective [Unknown]
